FAERS Safety Report 8530094-3 (Version None)
Quarter: 2012Q3

REPORT INFORMATION
  Report Type: 
  Country: None (occurrence: None)
  Receive Date: 20120723
  Receipt Date: 20120719
  Transmission Date: 20120928
  Serious: Yes (Hospitalization, Other)
  Sender: FDA-Public Use
  Company Number: PHHY2012ES061869

PATIENT

DRUGS (6)
  1. CLONAZEPAM [Concomitant]
     Dosage: 2 MG
  2. QUETIAPINE [Concomitant]
     Dosage: 300 MG
  3. LITHIUM CARBONATE [Concomitant]
     Dosage: 400 MG,
  4. LACTULOSE [Concomitant]
     Dosage: UNK UKN, UNK
  5. CLOZAPINE [Suspect]
     Indication: SCHIZOPHRENIA, PARANOID TYPE
     Dosage: 100 MG, QD
     Dates: start: 20120501, end: 20120620
  6. LORMETAZEPAM [Concomitant]
     Dosage: 1 MG

REACTIONS (4)
  - NEUTROPENIA [None]
  - WHITE BLOOD CELL COUNT DECREASED [None]
  - AGRANULOCYTOSIS [None]
  - CYTOMEGALOVIRUS INFECTION [None]
